FAERS Safety Report 7432268-1 (Version None)
Quarter: 2011Q2

REPORT INFORMATION
  Report Type: 
  Country: None (occurrence: None)
  Receive Date: 20110414
  Receipt Date: 20110404
  Transmission Date: 20111010
  Serious: Yes (Hospitalization)
  Sender: FDA-Public Use
  Company Number: AXC-2011-000121

PATIENT
  Age: 57 Year
  Sex: Female
  Weight: 78.5 kg

DRUGS (3)
  1. PYLERA [Suspect]
     Indication: HELICOBACTER INFECTION
     Dosage: 3 DF, QUID, ORAL; 1 DF, SINGLE, ORAL;
     Route: 048
     Dates: start: 20110329, end: 20110329
  2. PYLERA [Suspect]
     Indication: HELICOBACTER INFECTION
     Dosage: 3 DF, QUID, ORAL; 1 DF, SINGLE, ORAL;
     Route: 048
     Dates: start: 20110322, end: 20110326
  3. LOTREL (ALMODIPINE, BENZEPRIL HYDROCHLORIDE) [Concomitant]

REACTIONS (11)
  - DIZZINESS [None]
  - VOMITING [None]
  - WALKING AID USER [None]
  - GAIT DISTURBANCE [None]
  - VISION BLURRED [None]
  - HYPOPHAGIA [None]
  - BLOOD PRESSURE INCREASED [None]
  - BALANCE DISORDER [None]
  - ASTHENIA [None]
  - MOVEMENT DISORDER [None]
  - HYPERHIDROSIS [None]
